FAERS Safety Report 10685271 (Version 1)
Quarter: 2014Q4

REPORT INFORMATION
  Report Type: Spontaneous
  Country: TR (occurrence: TR)
  Receive Date: 20141231
  Receipt Date: 20141231
  Transmission Date: 20150529
  Serious: Yes (Other)
  Sender: FDA-Public Use
  Company Number: PHHY2014TR168278

PATIENT
  Age: 67 Year
  Sex: Female

DRUGS (5)
  1. BRIMONIDINE TARTRATE. [Concomitant]
     Active Substance: BRIMONIDINE TARTRATE
     Indication: EXFOLIATION GLAUCOMA
     Dosage: UNK
     Route: 065
  2. TRAVOPROST [Concomitant]
     Active Substance: TRAVOPROST
     Indication: EXFOLIATION GLAUCOMA
     Dosage: UNK
     Route: 065
  3. CARTEOLOL HYDROCHLORIDE. [Concomitant]
     Active Substance: CARTEOLOL HYDROCHLORIDE
     Indication: EXFOLIATION GLAUCOMA
     Dosage: UNK
     Route: 065
  4. CARBAMAZEPINE. [Suspect]
     Active Substance: CARBAMAZEPINE
     Indication: TRIGEMINAL NEURALGIA
     Route: 065
  5. GABAPENTIN. [Suspect]
     Active Substance: GABAPENTIN
     Indication: TRIGEMINAL NEURALGIA
     Dosage: UNK
     Route: 065

REACTIONS (4)
  - Intraocular pressure increased [Unknown]
  - Mydriasis [Unknown]
  - Anterior chamber disorder [Unknown]
  - Open angle glaucoma [Unknown]
